FAERS Safety Report 8222407-7 (Version None)
Quarter: 2012Q1

REPORT INFORMATION
  Report Type: 
  Country: None (occurrence: None)
  Receive Date: 20120320
  Receipt Date: 20120312
  Transmission Date: 20120608
  Serious: Yes (Other)
  Sender: FDA-Public Use
  Company Number: US-BAYER-2011-075596

PATIENT
  Age: 30 Year
  Sex: Female
  Weight: 58.05 kg

DRUGS (8)
  1. PROMETHAZINE [Concomitant]
     Indication: VOMITING
     Dosage: UNK
     Dates: start: 20060410
  2. YASMIN [Suspect]
     Indication: ACNE
  3. OXYCODONE HCL [Concomitant]
     Indication: PAIN
     Dosage: UNK
     Dates: start: 20060609
  4. CHOLESTYRAMINE [Concomitant]
     Dosage: UNK
     Dates: start: 20060714
  5. YASMIN [Suspect]
     Indication: PREMENSTRUAL SYNDROME
  6. YASMIN [Suspect]
     Indication: CONTRACEPTION
     Dosage: UNK
     Dates: start: 20011101, end: 20070401
  7. ASTELIN [Concomitant]
     Indication: MULTIPLE ALLERGIES
     Dosage: UNK
     Dates: start: 20060523
  8. YAZ [Suspect]
     Dosage: UNK
     Dates: start: 20070404, end: 20090915

REACTIONS (3)
  - EMOTIONAL DISTRESS [None]
  - THROMBOSIS [None]
  - CHOLECYSTITIS CHRONIC [None]
